FAERS Safety Report 9954792 (Version 1)
Quarter: 2014Q1

REPORT INFORMATION
  Report Type: Report from Study
  Country: CA (occurrence: CA)
  Receive Date: 20140304
  Receipt Date: 20140304
  Transmission Date: 20141002
  Serious: Yes (Other)
  Sender: FDA-Public Use
  Company Number: CA-BRISTOL-MYERS SQUIBB COMPANY-20298618

PATIENT
  Age: 58 Year
  Sex: Female

DRUGS (15)
  1. ABATACEPT SUBQ INJECTION 125MG/ML [Suspect]
     Indication: RHEUMATOID ARTHRITIS
     Dosage: 1 DF= 125 UNITS?ONGOING
     Route: 058
     Dates: start: 20140210, end: 20140210
  2. PANTOPRAZOLE [Concomitant]
  3. METHOTREXATE [Concomitant]
  4. METFORMIN [Concomitant]
  5. IRBESARTAN [Concomitant]
  6. HYDROCHLOROTHIAZIDE [Concomitant]
  7. HYDROXYZINE [Concomitant]
  8. CLOPIDOGREL BISULFATE [Concomitant]
  9. BISOPROLOL [Concomitant]
  10. ATORVASTATIN [Concomitant]
  11. ASPIRIN [Concomitant]
  12. ACETAMINOPHEN [Concomitant]
  13. HUMALOG [Concomitant]
  14. HUMULIN [Concomitant]
  15. HYDROXYCHLOROQUINE [Concomitant]

REACTIONS (10)
  - Cardiac disorder [Unknown]
  - Mouth ulceration [Unknown]
  - Skin lesion [Unknown]
  - Epistaxis [Unknown]
  - Nasal congestion [Unknown]
  - Aphonia [Unknown]
  - Influenza [Unknown]
  - Lymphadenopathy [Unknown]
  - Oropharyngeal pain [Unknown]
  - Anaemia [Unknown]
